FAERS Safety Report 16993228 (Version 1)
Quarter: 2019Q4

REPORT INFORMATION
  Report Type: Spontaneous
  Country: NL (occurrence: NL)
  Receive Date: 20191105
  Receipt Date: 20191105
  Transmission Date: 20200122
  Serious: Yes (Hospitalization, Other)
  Sender: FDA-Public Use
  Company Number: NL-AMNEAL PHARMACEUTICALS-2019-AMRX-02535

PATIENT
  Age: 18 Year
  Sex: Female

DRUGS (11)
  1. NSAIDS [Concomitant]
     Active Substance: UNSPECIFIED INGREDIENT
     Indication: ANAPHYLACTIC REACTION
     Dosage: UNK
     Route: 065
  2. OMALIZUMAB. [Concomitant]
     Active Substance: OMALIZUMAB
     Indication: CHRONIC SPONTANEOUS URTICARIA
     Dosage: UNK
     Route: 048
  3. DEXAMETHASONE. [Concomitant]
     Active Substance: DEXAMETHASONE
     Indication: ANAPHYLACTIC REACTION
     Dosage: UNK
     Route: 065
  4. ANTIHISTAMINES [Concomitant]
     Active Substance: ANTIHISTAMINES NOS
     Indication: CHRONIC SPONTANEOUS URTICARIA
     Dosage: UNK
     Route: 048
  5. ANTIHISTAMINES [Concomitant]
     Active Substance: ANTIHISTAMINES NOS
     Indication: ANAPHYLACTIC REACTION
  6. COLCHICINE. [Concomitant]
     Active Substance: COLCHICINE
     Indication: KOUNIS SYNDROME
     Dosage: UNK
     Route: 065
  7. ADRENACLICK [Suspect]
     Active Substance: EPINEPHRINE
     Indication: ANAPHYLACTIC REACTION
     Dosage: UNK
     Route: 042
  8. ANTIHISTAMINES [Concomitant]
     Active Substance: ANTIHISTAMINES NOS
     Indication: ANGIOEDEMA
  9. COLCHICINE. [Concomitant]
     Active Substance: COLCHICINE
     Indication: STRESS CARDIOMYOPATHY
  10. OMALIZUMAB. [Concomitant]
     Active Substance: OMALIZUMAB
     Indication: ANGIOEDEMA
  11. MORPHINE [Concomitant]
     Active Substance: MORPHINE
     Indication: ANAPHYLACTIC REACTION
     Dosage: UNK
     Route: 065

REACTIONS (2)
  - Kounis syndrome [Recovering/Resolving]
  - Stress cardiomyopathy [Recovering/Resolving]
